FAERS Safety Report 6075677-8 (Version None)
Quarter: 2009Q1

REPORT INFORMATION
  Report Type: 
  Country: None (occurrence: None)
  Receive Date: 20090212
  Receipt Date: 20090202
  Transmission Date: 20090719
  Serious: Yes (Death)
  Sender: FDA-Public Use
  Company Number: JP-ABBOTT-08P-087-0494732-00

PATIENT
  Age: 76 Year
  Sex: Male

DRUGS (5)
  1. LEUPROLIDE ACETATE [Suspect]
     Indication: PROSTATE CANCER
     Route: 058
     Dates: start: 20061005, end: 20080207
  2. LEUPROLIDE ACETATE [Suspect]
     Dates: start: 20060831, end: 20061005
  3. CASODEX [Concomitant]
     Indication: PROSTATE CANCER
     Route: 048
     Dates: end: 20080207
  4. BESACOLIN [Concomitant]
     Indication: DYSURIA
     Route: 048
     Dates: start: 20071101, end: 20080207
  5. URIEF [Concomitant]
     Indication: DYSURIA
     Route: 048
     Dates: start: 20071101, end: 20080207

REACTIONS (1)
  - LUNG NEOPLASM MALIGNANT [None]
